FAERS Safety Report 12820492 (Version 4)
Quarter: 2017Q3

REPORT INFORMATION
  Report Type: Report from Study
  Country: CA (occurrence: CA)
  Receive Date: 20161006
  Receipt Date: 20170816
  Transmission Date: 20171127
  Serious: Yes (Other)
  Sender: FDA-Public Use
  Company Number: CA-UCBSA-2016036553

PATIENT
  Age: 51 Year
  Sex: Female

DRUGS (8)
  1. CYMBALTA [Concomitant]
     Active Substance: DULOXETINE HYDROCHLORIDE
     Indication: PAIN
     Dosage: UNK
  2. CALCIUM [Concomitant]
     Active Substance: CALCIUM
     Indication: PRODUCT USED FOR UNKNOWN INDICATION
  3. COLLAGEN [Concomitant]
     Active Substance: COLLAGEN
     Indication: PRODUCT USED FOR UNKNOWN INDICATION
  4. CERTOLIZUMAB PEGOL ASP [Suspect]
     Active Substance: CERTOLIZUMAB PEGOL
     Indication: ANKYLOSING SPONDYLITIS
     Dosage: 400 MG, EV 2 WEEKS(QOW) (3 DOSES)
     Route: 058
     Dates: start: 20160123, end: 2016
  5. CLINDAMYCIN. [Concomitant]
     Active Substance: CLINDAMYCIN
     Indication: TOOTH INFECTION
     Dosage: UNK
  6. CERTOLIZUMAB PEGOL ASP [Suspect]
     Active Substance: CERTOLIZUMAB PEGOL
     Dosage: 200 MG, EV 2 WEEKS(QOW)
     Route: 058
     Dates: end: 20170502
  7. HYDROMORPHONE [Concomitant]
     Active Substance: HYDROMORPHONE
     Indication: PAIN
  8. EFFEXOR [Concomitant]
     Active Substance: VENLAFAXINE HYDROCHLORIDE
     Indication: DEPRESSION
     Dosage: UNK

REACTIONS (14)
  - Tooth infection [Unknown]
  - Candida infection [Not Recovered/Not Resolved]
  - Fatigue [Unknown]
  - Spinal fracture [Unknown]
  - Skin ulcer [Unknown]
  - Acne [Unknown]
  - Pruritus [Unknown]
  - Infection [Unknown]
  - Intervertebral disc displacement [Unknown]
  - Laryngitis [Unknown]
  - Influenza [Not Recovered/Not Resolved]
  - Tooth abscess [Unknown]
  - Sleep apnoea syndrome [Unknown]
  - Vaginal infection [Unknown]

NARRATIVE: CASE EVENT DATE: 201704
